FAERS Safety Report 18760782 (Version 2)
Quarter: 2021Q1

REPORT INFORMATION
  Report Type: Report from Study
  Country: CA (occurrence: CA)
  Receive Date: 20210120
  Receipt Date: 20210309
  Transmission Date: 20210419
  Serious: Yes (Death, Hospitalization)
  Sender: FDA-Public Use
  Company Number: CA-TAIHO ONCOLOGY  INC-EU-2021-00168

PATIENT
  Age: 61 Year
  Sex: Male

DRUGS (4)
  1. LONSURF [Suspect]
     Active Substance: TIPIRACIL HYDROCHLORIDE\TRIFLURIDINE
     Indication: COLORECTAL CANCER METASTATIC
     Dosage: CYCLE 1
     Route: 048
     Dates: start: 20201116, end: 20201203
  2. METOCLOPRAMIDE. [Concomitant]
     Active Substance: METOCLOPRAMIDE
  3. ONDANSETRON [Concomitant]
     Active Substance: ONDANSETRON
  4. HYDROMORPHONE [Concomitant]
     Active Substance: HYDROMORPHONE

REACTIONS (2)
  - Hepatic failure [Fatal]
  - Disease progression [Unknown]

NARRATIVE: CASE EVENT DATE: 20201212
